FAERS Safety Report 17589519 (Version 1)
Quarter: 2020Q1

REPORT INFORMATION
  Report Type: Spontaneous
  Country: US (occurrence: US)
  Receive Date: 20200327
  Receipt Date: 20200327
  Transmission Date: 20200409
  Serious: No
  Sender: FDA-Public Use
  Company Number: US-ALLERGAN-1922179US

PATIENT
  Sex: Female

DRUGS (2)
  1. LATISSE [Suspect]
     Active Substance: BIMATOPROST
     Indication: GROWTH OF EYELASHES
     Dosage: 2 GTT, ONCE EVERY OTHER DAY OR EVERY TWO DAYS
     Route: 061
     Dates: end: 201904
  2. LATISSE [Suspect]
     Active Substance: BIMATOPROST
     Dosage: 2 GTT, QHS
     Route: 061
     Dates: start: 201708

REACTIONS (3)
  - Inappropriate schedule of product administration [Unknown]
  - Erythema of eyelid [Unknown]
  - Eyelid irritation [Unknown]
